FAERS Safety Report 9171093 (Version 1)
Quarter: 2013Q1

REPORT INFORMATION
  Report Type: Spontaneous
  Country: CA (occurrence: CA)
  Receive Date: 20130319
  Receipt Date: 20130319
  Transmission Date: 20140127
  Serious: Yes (Hospitalization, Other)
  Sender: FDA-Public Use
  Company Number: CA-PFIZER INC-2013087364

PATIENT
  Age: 57 Year
  Sex: Female

DRUGS (1)
  1. CHAMPIX [Suspect]
     Dosage: UNK
     Dates: start: 2013

REACTIONS (7)
  - Paranoia [Unknown]
  - Confusional state [Unknown]
  - Insomnia [Unknown]
  - Abnormal dreams [Unknown]
  - Aggression [Unknown]
  - Logorrhoea [Unknown]
  - Convulsion [Unknown]
